FAERS Safety Report 9982044 (Version 2)
Quarter: 2014Q1

REPORT INFORMATION
  Report Type: Report from Study
  Country: US (occurrence: US)
  Receive Date: 20140307
  Receipt Date: 20140307
  Transmission Date: 20141002
  Serious: No
  Sender: FDA-Public Use
  Company Number: US-ABBVIE-13P-163-1158708-00

PATIENT
  Age: 41 Year
  Sex: Female

DRUGS (5)
  1. HUMIRA [Suspect]
     Indication: CROHN^S DISEASE
     Dates: start: 20130930, end: 20130930
  2. HUMIRA [Suspect]
     Dosage: ONLY RECEIVED 40 MG DOSE
     Dates: start: 20131014, end: 20131014
  3. HUMIRA [Suspect]
  4. PREDNISONE [Concomitant]
     Indication: CROHN^S DISEASE
     Dosage: FOR ONE WEEK, TAPER BY 5MG EVERY WEEK TILL FINISHED.
  5. IMURAN [Concomitant]
     Indication: CROHN^S DISEASE
     Dosage: 2 TABS DAILY

REACTIONS (4)
  - Device malfunction [Unknown]
  - Incorrect dose administered [Unknown]
  - Injection site pain [Recovered/Resolved]
  - Wrong technique in drug usage process [Unknown]
